FAERS Safety Report 8222741-0 (Version None)
Quarter: 2012Q1

REPORT INFORMATION
  Report Type: 
  Country: None (occurrence: None)
  Receive Date: 20120320
  Receipt Date: 20120313
  Transmission Date: 20120608
  Serious: Yes (Life-Threatening, Hospitalization, Other)
  Sender: FDA-Public Use
  Company Number: JP-ASTRAZENECA-2012SE14617

PATIENT
  Age: 26870 Day
  Sex: Female
  Weight: 46.4 kg

DRUGS (9)
  1. SEROQUEL [Suspect]
     Route: 048
     Dates: start: 20120207, end: 20120207
  2. SELEGILINE HCL [Concomitant]
     Dates: start: 20110913, end: 20111006
  3. YOKUKAN-SAN [Suspect]
     Indication: HYPOKALAEMIA
     Route: 048
     Dates: end: 20120206
  4. YOKUKAN-SAN [Suspect]
     Route: 048
     Dates: start: 20120207, end: 20120207
  5. LAXOBERON [Concomitant]
     Dates: start: 20091224
  6. GLUCONSAN K [Concomitant]
     Dates: start: 20100913, end: 20120207
  7. SEROQUEL [Suspect]
     Indication: DEMENTIA WITH LEWY BODIES
     Route: 048
     Dates: end: 20120206
  8. MENEST [Concomitant]
     Dates: start: 20110620, end: 20120207
  9. ARICEPT [Concomitant]
     Dates: end: 20111014

REACTIONS (4)
  - HYPOKALAEMIA [None]
  - NEUROLEPTIC MALIGNANT SYNDROME [None]
  - CONSTIPATION [None]
  - OFF LABEL USE [None]
